FAERS Safety Report 16052640 (Version 4)
Quarter: 2020Q1

REPORT INFORMATION
  Report Type: Spontaneous
  Country: CH (occurrence: CH)
  Receive Date: 20190308
  Receipt Date: 20200102
  Transmission Date: 20200409
  Serious: Yes (Hospitalization)
  Sender: FDA-Public Use
  Company Number: CH-PFIZER INC-2019094891

PATIENT
  Age: 40 Year
  Sex: Female
  Weight: 60 kg

DRUGS (6)
  1. TEMESTA (LORAZEPAM) [Suspect]
     Active Substance: LORAZEPAM
     Indication: SUICIDAL IDEATION
     Dosage: 125 MG, SINGLE (50 TABLETS, 125 MG, SLOW-RELEASE)
     Dates: start: 2014
  2. MOTILIUM [Suspect]
     Active Substance: DOMPERIDONE
     Dosage: UNK
  3. ANAFRANIL [Suspect]
     Active Substance: CLOMIPRAMINE HYDROCHLORIDE
     Indication: SUICIDAL IDEATION
     Dosage: 8625 MG, SINGLE (115 TABLETS, 8,625 MG, SLOW-RELEASE)
     Dates: start: 2014
  4. TEMESTA (LORAZEPAM) [Suspect]
     Active Substance: LORAZEPAM
     Indication: BORDERLINE PERSONALITY DISORDER
     Dosage: 2.5 MG, 2X/DAY
     Dates: start: 2014
  5. ANAFRANIL [Suspect]
     Active Substance: CLOMIPRAMINE HYDROCHLORIDE
     Indication: BORDERLINE PERSONALITY DISORDER
     Dosage: 150 MG, DAILY
     Dates: start: 2014
  6. MOTILIUM [Suspect]
     Active Substance: DOMPERIDONE
     Indication: BORDERLINE PERSONALITY DISORDER
     Dosage: 160 MG, SINGLE (16 TABLETS, 160 MG, SLOW-RELEASE)
     Dates: start: 2014

REACTIONS (3)
  - Bezoar [Recovered/Resolved]
  - Coma [Recovered/Resolved]
  - Overdose [Recovered/Resolved]
